FAERS Safety Report 10195158 (Version 1)
Quarter: 2014Q2

REPORT INFORMATION
  Report Type: Spontaneous
  Country: US (occurrence: US)
  Receive Date: 20140526
  Receipt Date: 20140526
  Transmission Date: 20141212
  Serious: No
  Sender: FDA-Public Use
  Company Number: US-ASTRAZENECA-2014SE34525

PATIENT
  Age: 81 Year
  Sex: Female
  Weight: 69.9 kg

DRUGS (5)
  1. SYMBICORT [Suspect]
     Indication: ASTHMA
     Dosage: 80-4.5, TWO PUFFS BID
     Route: 055
     Dates: start: 201308, end: 20140513
  2. SYMBICORT [Suspect]
     Indication: ASTHMA
     Dosage: 160-4.5 MCG ONE PUFF BID
     Route: 055
     Dates: start: 20140513
  3. IBSARTAN [Concomitant]
     Indication: BLOOD PRESSURE
     Route: 048
  4. LIPITOR [Concomitant]
     Indication: BLOOD CHOLESTEROL ABNORMAL
     Route: 048
  5. SYNTHROID [Concomitant]
     Indication: THYROID DISORDER
     Dosage: 0.50 DAILY
     Route: 048

REACTIONS (5)
  - Asthma [Unknown]
  - Choking [Recovered/Resolved]
  - Sleep disorder due to general medical condition, insomnia type [Unknown]
  - Abdominal pain upper [Recovered/Resolved]
  - Cough [Recovered/Resolved]
